FAERS Safety Report 17186075 (Version 1)
Quarter: 2019Q4

REPORT INFORMATION
  Report Type: Report from Study
  Country: CA (occurrence: CA)
  Receive Date: 20191220
  Receipt Date: 20191220
  Transmission Date: 20200122
  Serious: Yes (Death)
  Sender: FDA-Public Use
  Company Number: CA-ASTRAZENECA-2019SF83546

PATIENT
  Sex: Female

DRUGS (2)
  1. GIOTRIF (AFATINIB) [Concomitant]
     Dates: start: 20180806, end: 20180901
  2. TAGRISSO [Suspect]
     Active Substance: OSIMERTINIB
     Indication: NON-SMALL CELL LUNG CANCER
     Route: 048
     Dates: start: 20181011

REACTIONS (1)
  - Death [Fatal]
